FAERS Safety Report 23792238 (Version 1)
Quarter: 2024Q2

REPORT INFORMATION
  Report Type: Spontaneous
  Country: US (occurrence: None)
  Receive Date: 20240429
  Receipt Date: 20240429
  Transmission Date: 20240715
  Serious: Yes (Hospitalization)
  Sender: FDA-Public Use
  Company Number: US-ROCHE-3550594

PATIENT
  Age: 75 Year
  Sex: Female

DRUGS (3)
  1. CELLCEPT [Suspect]
     Active Substance: MYCOPHENOLATE MOFETIL
     Indication: Product used for unknown indication
     Route: 065
  2. OFEV [Suspect]
     Active Substance: NINTEDANIB
     Indication: Product used for unknown indication
     Dosage: STRENGTH: 150MG
     Route: 048
     Dates: start: 20211208
  3. OFEV [Suspect]
     Active Substance: NINTEDANIB
     Dosage: STRENGTH: 100MG
     Route: 048
     Dates: start: 20230314

REACTIONS (5)
  - Pneumonitis [Unknown]
  - Diarrhoea [Recovered/Resolved]
  - Osteoporosis [Unknown]
  - Weight decreased [Unknown]
  - Taste disorder [Unknown]
